FAERS Safety Report 12954772 (Version 3)
Quarter: 2016Q4

REPORT INFORMATION
  Report Type: Report from Study
  Country: IN (occurrence: IN)
  Receive Date: 20161118
  Receipt Date: 20161128
  Transmission Date: 20170207
  Serious: Yes (Death)
  Sender: FDA-Public Use
  Company Number: IN-JNJFOC-20161119183

PATIENT

DRUGS (3)
  1. IFOSFAMIDE. [Suspect]
     Active Substance: IFOSFAMIDE
     Indication: OSTEOSARCOMA
     Route: 065
  2. CISPLATIN. [Suspect]
     Active Substance: CISPLATIN
     Indication: OSTEOSARCOMA
     Route: 065
  3. DOXORUBICIN HYDROCHLORIDE. [Suspect]
     Active Substance: DOXORUBICIN HYDROCHLORIDE
     Indication: OSTEOSARCOMA
     Route: 065

REACTIONS (8)
  - Thrombocytopenia [Unknown]
  - Off label use [Unknown]
  - Gastrointestinal toxicity [Unknown]
  - Death [Fatal]
  - Cardiotoxicity [Unknown]
  - Anaemia [Unknown]
  - Febrile neutropenia [Unknown]
  - Product use issue [Unknown]
